FAERS Safety Report 5519604-8 (Version None)
Quarter: 2007Q4

REPORT INFORMATION
  Report Type: 
  Country: None (occurrence: None)
  Receive Date: 20071114
  Receipt Date: 20071106
  Transmission Date: 20080405
  Serious: Yes (Hospitalization)
  Sender: FDA-Public Use
  Company Number: 2007BI016352

PATIENT
  Age: 60 Year
  Sex: Female

DRUGS (22)
  1. NATALIZUMAB [Suspect]
     Indication: MULTIPLE SCLEROSIS
     Dosage: 300 MG; QM; IV
     Route: 042
     Dates: start: 20061219
  2. AVONEX [Concomitant]
  3. ELMIRON [Concomitant]
  4. AMBIEN CR [Concomitant]
  5. PROCTOSOL [Concomitant]
  6. GLYCERIN SUPPOSITORY [Concomitant]
  7. OXYBUTYNIN CHLORIDE [Concomitant]
  8. METHADONE [Concomitant]
  9. METOPROLOL [Concomitant]
  10. FOSAMAX [Concomitant]
  11. AMITIZA [Concomitant]
  12. LISINOPRIL [Concomitant]
  13. SIMVASTATIN [Concomitant]
  14. NITROFURANTOIN [Concomitant]
  15. CRYSTALOSE [Concomitant]
  16. ASPIRIN [Concomitant]
  17. PROTONIX [Concomitant]
  18. AMYTRYPTYLINE [Concomitant]
  19. KEPPRA [Concomitant]
  20. BACLOFEN [Concomitant]
  21. MORPHINE [Concomitant]
  22. NITROQUICK [Concomitant]

REACTIONS (7)
  - ACUTE RESPIRATORY DISTRESS SYNDROME [None]
  - BLADDER OPERATION [None]
  - CARDIO-RESPIRATORY ARREST [None]
  - DISSEMINATED INTRAVASCULAR COAGULATION [None]
  - POST PROCEDURAL HAEMORRHAGE [None]
  - PROCEDURAL COMPLICATION [None]
  - THROMBOSIS [None]
